FAERS Safety Report 25139044 (Version 1)
Quarter: 2025Q1

REPORT INFORMATION
  Report Type: Spontaneous
  Country: US (occurrence: US)
  Receive Date: 20250331
  Receipt Date: 20250331
  Transmission Date: 20250408
  Serious: Yes (Hospitalization, Other)
  Sender: PROCTER AND GAMBLE
  Company Number: US-PROCTER+GAMBLE-PH25002299

PATIENT
  Age: 43 Year
  Sex: Female

DRUGS (6)
  1. DIPHENHYDRAMINE HYDROCHLORIDE [Suspect]
     Active Substance: DIPHENHYDRAMINE HYDROCHLORIDE
     Indication: Insomnia
     Dosage: 300-500 MILLIGRAM FOR OVER A YEAR, 1 /DAY AT NIGHTTIME
  2. DULOXETINE [Suspect]
     Active Substance: DULOXETINE
     Indication: Anxiety
  3. DULOXETINE [Suspect]
     Active Substance: DULOXETINE
     Indication: Depression
  4. ASENAPINE [Suspect]
     Active Substance: ASENAPINE
     Indication: Mood swings
  5. TRAZODONE [Suspect]
     Active Substance: TRAZODONE HYDROCHLORIDE
     Indication: Insomnia
  6. FENTANYL [Suspect]
     Active Substance: FENTANYL

REACTIONS (13)
  - Serotonin syndrome [Recovering/Resolving]
  - Respiratory distress [Recovering/Resolving]
  - Lactic acidosis [Recovering/Resolving]
  - Tachycardia [Recovering/Resolving]
  - Leukocytosis [Recovering/Resolving]
  - Drug interaction [Recovering/Resolving]
  - Muscle rigidity [Recovering/Resolving]
  - Autonomic nervous system imbalance [Recovering/Resolving]
  - Drug abuse [Recovering/Resolving]
  - Shock [Recovering/Resolving]
  - Blood lactic acid increased [Recovering/Resolving]
  - Muscle tightness [Recovering/Resolving]
  - Overdose [Recovering/Resolving]
